FAERS Safety Report 16679577 (Version 3)
Quarter: 2019Q4

REPORT INFORMATION
  Report Type: Spontaneous
  Country: US (occurrence: US)
  Receive Date: 20190807
  Receipt Date: 20191004
  Transmission Date: 20200122
  Serious: Yes (Death, Other)
  Sender: FDA-Public Use
  Company Number: US-ASTRAZENECA-2019SF09793

PATIENT
  Age: 21569 Day
  Sex: Male
  Weight: 92 kg

DRUGS (41)
  1. GABAPENTIN. [Concomitant]
     Active Substance: GABAPENTIN
  2. JANUVIA [Concomitant]
     Active Substance: SITAGLIPTIN PHOSPHATE
  3. CHANTIX [Concomitant]
     Active Substance: VARENICLINE TARTRATE
     Indication: SMOKING CESSATION THERAPY
     Dates: start: 201101, end: 201608
  4. CYCLOBENZAPRINE. [Concomitant]
     Active Substance: CYCLOBENZAPRINE
     Indication: MUSCLE RELAXANT THERAPY
     Dates: start: 201403, end: 201405
  5. VOLTAREN [Concomitant]
     Active Substance: DICLOFENAC SODIUM
  6. METFORMIN [Concomitant]
     Active Substance: METFORMIN HYDROCHLORIDE
  7. NEXIUM [Suspect]
     Active Substance: ESOMEPRAZOLE MAGNESIUM
     Indication: GASTROOESOPHAGEAL REFLUX DISEASE
     Route: 048
     Dates: start: 20091019
  8. ASPIRIN. [Concomitant]
     Active Substance: ASPIRIN
     Indication: CARDIAC DISORDER
     Dates: start: 2011, end: 2017
  9. JANUMET [Concomitant]
     Active Substance: METFORMIN HYDROCHLORIDE\SITAGLIPTIN PHOSPHATE
  10. LEVEMIR [Concomitant]
     Active Substance: INSULIN DETEMIR
  11. OFLOXACIN. [Concomitant]
     Active Substance: OFLOXACIN
  12. NEXIUM [Suspect]
     Active Substance: ESOMEPRAZOLE MAGNESIUM
     Indication: GASTROOESOPHAGEAL REFLUX DISEASE
     Dosage: GENERIC
     Route: 048
     Dates: start: 20150414
  13. ALPRAZOLAM. [Concomitant]
     Active Substance: ALPRAZOLAM
     Indication: ANXIETY
     Dates: start: 200911, end: 201607
  14. GLIPIZIDE. [Concomitant]
     Active Substance: GLIPIZIDE
     Indication: DIABETES MELLITUS
     Dates: start: 201103, end: 201512
  15. SERTRALINE [Concomitant]
     Active Substance: SERTRALINE HYDROCHLORIDE
     Indication: MOOD ALTERED
     Dates: start: 201507, end: 201510
  16. BYETTA [Concomitant]
     Active Substance: EXENATIDE
  17. ENDOCET [Concomitant]
     Active Substance: ACETAMINOPHEN\OXYCODONE HYDROCHLORIDE
  18. NAPROXEN. [Concomitant]
     Active Substance: NAPROXEN
  19. CILOSTAZOL. [Concomitant]
     Active Substance: CILOSTAZOL
  20. HYDROMORPHONE [Concomitant]
     Active Substance: HYDROMORPHONE
  21. FLUVIRIN NOS [Concomitant]
     Active Substance: INFLUENZA VIRUS VACCINE
  22. PRAVASTATIN. [Concomitant]
     Active Substance: PRAVASTATIN
     Indication: BLOOD CHOLESTEROL
     Dates: start: 201306, end: 201404
  23. LOSARTAN. [Concomitant]
     Active Substance: LOSARTAN
     Indication: BLOOD PRESSURE MEASUREMENT
     Dates: start: 201507, end: 201606
  24. FLECTOR [Concomitant]
     Active Substance: DICLOFENAC EPOLAMINE
  25. TAMSULOSIN [Concomitant]
     Active Substance: TAMSULOSIN
     Indication: URINARY RETENTION
     Dates: start: 201309, end: 201507
  26. VICTOZA [Concomitant]
     Active Substance: LIRAGLUTIDE
  27. FUROSEMIDE. [Concomitant]
     Active Substance: FUROSEMIDE
  28. ATORVASTATIN [Concomitant]
     Active Substance: ATORVASTATIN
  29. GLIMEPIRIDE. [Concomitant]
     Active Substance: GLIMEPIRIDE
  30. NEXIUM [Suspect]
     Active Substance: ESOMEPRAZOLE MAGNESIUM
     Indication: GASTROOESOPHAGEAL REFLUX DISEASE
     Route: 048
     Dates: start: 200910, end: 201708
  31. SIMVASTATIN. [Concomitant]
     Active Substance: SIMVASTATIN
     Indication: BLOOD CHOLESTEROL
     Dates: start: 201007, end: 201009
  32. ZETIA [Concomitant]
     Active Substance: EZETIMIBE
     Indication: BLOOD CHOLESTEROL
     Dates: start: 201004, end: 201005
  33. DIAZEPAM. [Concomitant]
     Active Substance: DIAZEPAM
  34. NASONEX [Concomitant]
     Active Substance: MOMETASONE FUROATE
  35. DOXYCYCLINE HYCLATE. [Concomitant]
     Active Substance: DOXYCYCLINE HYCLATE
  36. NEXIUM [Suspect]
     Active Substance: ESOMEPRAZOLE MAGNESIUM
     Indication: GASTROOESOPHAGEAL REFLUX DISEASE
     Dosage: GENERIC
     Route: 065
     Dates: start: 201504, end: 201505
  37. METOPROLOL. [Concomitant]
     Active Substance: METOPROLOL
     Indication: BLOOD PRESSURE MEASUREMENT
     Dates: start: 201310, end: 201510
  38. RANITIDINE. [Concomitant]
     Active Substance: RANITIDINE
  39. ACYCLOVIR. [Concomitant]
     Active Substance: ACYCLOVIR
  40. MUPIROCIN. [Concomitant]
     Active Substance: MUPIROCIN
  41. ZOVIRAX [Concomitant]
     Active Substance: ACYCLOVIR

REACTIONS (7)
  - Chronic kidney disease [Recovered/Resolved]
  - Bronchial secretion retention [Fatal]
  - Cardio-respiratory arrest [Fatal]
  - Acute kidney injury [Recovered/Resolved]
  - Respiratory failure [Fatal]
  - Hypoxia [Fatal]
  - Cognitive disorder [Fatal]

NARRATIVE: CASE EVENT DATE: 20170810
